FAERS Safety Report 5799761-9 (Version None)
Quarter: 2008Q3

REPORT INFORMATION
  Report Type: 
  Country: None (occurrence: None)
  Receive Date: 20080703
  Receipt Date: 20080627
  Transmission Date: 20090109
  Serious: Yes (Other)
  Sender: FDA-Public Use
  Company Number: BR-ASTRAZENECA-2008UW13109

PATIENT
  Age: 60 Year
  Sex: Male
  Weight: 89 kg

DRUGS (9)
  1. ATACAND [Suspect]
     Indication: HYPERTENSION
     Route: 048
     Dates: start: 20020101, end: 20050101
  2. ATACAND HCT [Suspect]
     Indication: HYPERTENSION
     Route: 048
     Dates: start: 20050101
  3. SYMBICORT [Concomitant]
     Indication: BRONCHITIS
     Route: 055
     Dates: start: 20080501, end: 20080601
  4. SYMBICORT [Concomitant]
     Route: 055
     Dates: start: 20080601
  5. EUTHYROX [Concomitant]
     Indication: BLOOD THYROID STIMULATING HORMONE ABNORMAL
     Dates: start: 20071101
  6. SERETIDE [Concomitant]
     Indication: BRONCHITIS
     Dates: start: 20030501, end: 20070101
  7. RENITEC [Concomitant]
     Indication: HYPERTENSION
  8. OMEPRAZOLE [Concomitant]
     Indication: GASTROOESOPHAGEAL REFLUX DISEASE
  9. SIMVASTATIN [Concomitant]
     Indication: BLOOD CHOLESTEROL

REACTIONS (13)
  - BLOOD CHOLESTEROL INCREASED [None]
  - BLOOD GLUCOSE INCREASED [None]
  - BLOOD THYROID STIMULATING HORMONE ABNORMAL [None]
  - BLOOD THYROID STIMULATING HORMONE INCREASED [None]
  - BLOOD TRIGLYCERIDES INCREASED [None]
  - BRONCHITIS [None]
  - COUGH [None]
  - GASTROOESOPHAGEAL REFLUX DISEASE [None]
  - MUSCLE SPASMS [None]
  - PAIN [None]
  - PRODUCTIVE COUGH [None]
  - THROAT TIGHTNESS [None]
  - THYROID NEOPLASM [None]
